FAERS Safety Report 9800009 (Version 1)
Quarter: 2014Q1

REPORT INFORMATION
  Report Type: Spontaneous
  Country: US (occurrence: US)
  Receive Date: 20140106
  Receipt Date: 20140106
  Transmission Date: 20141002
  Serious: No
  Sender: FDA-Public Use
  Company Number: US-GILEAD-2010-0030969

PATIENT
  Age: 67 Year
  Sex: Female
  Weight: 88.45 kg

DRUGS (18)
  1. LETAIRIS [Suspect]
     Indication: PULMONARY ARTERIAL HYPERTENSION
     Route: 048
     Dates: start: 20080716
  2. LEVOTHROID [Concomitant]
  3. LANOXIN [Concomitant]
  4. METFORMIN [Concomitant]
  5. DILTIAZEM [Concomitant]
  6. ZOCOR [Concomitant]
  7. FLEXERIL [Concomitant]
  8. LASIX [Concomitant]
  9. RANITIDINE [Concomitant]
  10. DIOVAN [Concomitant]
  11. OXYBUTYNIN [Concomitant]
  12. SPIRONOLACTONE [Concomitant]
  13. POTASSIUM CHLORIDE [Concomitant]
  14. MULTIVITAMIN [Concomitant]
  15. COLCHICINE [Concomitant]
  16. PLAVIX [Concomitant]
  17. TYLENOL [Concomitant]
  18. TRAMADOL [Concomitant]

REACTIONS (1)
  - Palpitations [Unknown]
